FAERS Safety Report 7301126-5 (Version None)
Quarter: 2011Q1

REPORT INFORMATION
  Report Type: 
  Country: None (occurrence: None)
  Receive Date: 20110218
  Receipt Date: 20100908
  Transmission Date: 20110831
  Serious: Yes (Hospitalization, Other)
  Sender: FDA-Public Use
  Company Number: US-BAYER-201010649NA

PATIENT
  Sex: Female
  Weight: 66 kg

DRUGS (4)
  1. YAZ [Suspect]
     Indication: ORAL CONTRACEPTION
     Dosage: UNK
     Dates: start: 20081201
  2. LASIX [Concomitant]
     Dosage: 20 MG, QD
     Route: 048
     Dates: start: 20080609
  3. YAZ [Suspect]
     Indication: METRORRHAGIA
     Dosage: UNK
     Dates: start: 20081201, end: 20090701
  4. YAZ [Suspect]
     Dosage: UNK
     Dates: start: 20091001, end: 20091101

REACTIONS (9)
  - ABDOMINAL DISTENSION [None]
  - CHOLECYSTITIS [None]
  - ABDOMINAL PAIN UPPER [None]
  - DYSPEPSIA [None]
  - BILIARY COLIC [None]
  - UTERINE HAEMORRHAGE [None]
  - NAUSEA [None]
  - CHEST PAIN [None]
  - GALLBLADDER POLYP [None]
